FAERS Safety Report 23098025 (Version 1)
Quarter: 2023Q4

REPORT INFORMATION
  Report Type: Spontaneous
  Country: US (occurrence: US)
  Receive Date: 20231023
  Receipt Date: 20231023
  Transmission Date: 20240110
  Serious: Yes (Death, Other)
  Sender: FDA-Public Use
  Company Number: US-ABBVIE-5461735

PATIENT
  Age: 16 Year
  Sex: Male

DRUGS (3)
  1. DIVALPROEX SODIUM [Suspect]
     Active Substance: DIVALPROEX SODIUM
     Indication: Product used for unknown indication
     Route: 065
  2. OLANZAPINE [Suspect]
     Active Substance: OLANZAPINE
     Indication: Product used for unknown indication
     Route: 065
  3. ABILIFY [Suspect]
     Active Substance: ARIPIPRAZOLE
     Indication: Mood swings
     Route: 065
     Dates: start: 201804

REACTIONS (4)
  - Completed suicide [Fatal]
  - Product use in unapproved indication [Unknown]
  - Circulatory collapse [Unknown]
  - Insomnia [Unknown]

NARRATIVE: CASE EVENT DATE: 20180401
